FAERS Safety Report 23865457 (Version 1)
Quarter: 2024Q2

REPORT INFORMATION
  Report Type: Spontaneous
  Country: US (occurrence: US)
  Receive Date: 20240517
  Receipt Date: 20240517
  Transmission Date: 20240716
  Serious: Yes (Other)
  Sender: FDA-Public Use
  Company Number: US-GLAXOSMITHKLINE-US2024AMR061547

PATIENT

DRUGS (1)
  1. ALBUTEROL SULFATE [Suspect]
     Active Substance: ALBUTEROL SULFATE
     Indication: Lower respiratory tract infection viral
     Dosage: UNK

REACTIONS (10)
  - Rheumatoid arthritis [Unknown]
  - Nasopharyngitis [Unknown]
  - Cough [Unknown]
  - Dizziness [Unknown]
  - Heart rate increased [Unknown]
  - Pain in extremity [Unknown]
  - Erythema [Unknown]
  - Tremor [Unknown]
  - Product prescribing issue [Unknown]
  - Product use in unapproved indication [Unknown]
